FAERS Safety Report 4564173-2 (Version None)
Quarter: 2005Q1

REPORT INFORMATION
  Report Type: 
  Country: None (occurrence: None)
  Receive Date: 20050126
  Receipt Date: 20050113
  Transmission Date: 20050727
  Serious: Yes (Life-Threatening, Other)
  Sender: FDA-Public Use
  Company Number: 2005013903

PATIENT
  Age: 74 Year
  Sex: Female

DRUGS (1)
  1. VALDECOXIB [Suspect]
     Indication: ARTHRITIS
     Dosage: (20 MG), ORAL
     Route: 048

REACTIONS (1)
  - TRANSIENT ISCHAEMIC ATTACK [None]
